FAERS Safety Report 9650719 (Version 1)
Quarter: 2013Q4

REPORT INFORMATION
  Report Type: Report from Study
  Country: FR (occurrence: FR)
  Receive Date: 20131029
  Receipt Date: 20131029
  Transmission Date: 20140711
  Serious: Yes (Hospitalization, Other)
  Sender: FDA-Public Use
  Company Number: FR-BRISTOL-MYERS SQUIBB COMPANY-19616341

PATIENT
  Age: 63 Year
  Sex: Female

DRUGS (7)
  1. CARBOPLATIN [Suspect]
     Indication: OVARIAN CANCER
     Dosage: LAST DOSE ON 11SE2013
     Route: 065
     Dates: start: 20130418
  2. PACLITAXEL [Suspect]
     Indication: OVARIAN CANCER
     Dosage: LAST DOSE ON 20JUN13
     Route: 065
     Dates: start: 20130418
  3. BEVACIZUMAB [Suspect]
     Indication: OVARIAN CANCER
     Dosage: LAST DOSE ON 11SE2013
     Route: 065
     Dates: start: 20130418
  4. TOPALGIC [Concomitant]
     Dates: start: 201304
  5. DAFALGAN [Concomitant]
     Dates: start: 201304
  6. VOGALENE [Concomitant]
     Dates: start: 201304
  7. SPASFON [Concomitant]
     Dates: start: 201305

REACTIONS (1)
  - Abdominal pain [Recovered/Resolved]
